FAERS Safety Report 17678118 (Version 3)
Quarter: 2020Q3

REPORT INFORMATION
  Report Type: Report from Study
  Country: None (occurrence: US)
  Receive Date: 20200417
  Receipt Date: 20200723
  Transmission Date: 20201102
  Serious: Yes (Other)
  Sender: FDA-Public Use
  Company Number: US-ABBVIE-20P-163-3367685-00

PATIENT
  Sex: Male

DRUGS (2)
  1. IMBRUVICA [Suspect]
     Active Substance: IBRUTINIB
     Indication: MANTLE CELL LYMPHOMA
     Route: 048
     Dates: start: 20200410
  2. IMBRUVICA [Suspect]
     Active Substance: IBRUTINIB
     Route: 048
     Dates: start: 202004

REACTIONS (6)
  - Lacrimation increased [Unknown]
  - Mass [Recovering/Resolving]
  - Vision blurred [Unknown]
  - Retinal detachment [Unknown]
  - Blood pressure fluctuation [Unknown]
  - Asthenia [Unknown]

NARRATIVE: CASE EVENT DATE: 2020
